FAERS Safety Report 18548338 (Version 1)
Quarter: 2020Q4

REPORT INFORMATION
  Report Type: Spontaneous
  Country: FR (occurrence: FR)
  Receive Date: 20201125
  Receipt Date: 20201125
  Transmission Date: 20210114
  Serious: Yes (Other)
  Sender: FDA-Public Use
  Company Number: FR-BEH-2020125353

PATIENT
  Age: 59 Year
  Sex: Male
  Weight: 74 kg

DRUGS (16)
  1. TRAMADOL BASI [Concomitant]
     Active Substance: TRAMADOL HYDROCHLORIDE
     Indication: PAIN
     Dosage: 50 MILLIGRAM, PRN (IF PAIN)
  2. MOTILIUM [Concomitant]
     Active Substance: DOMPERIDONE
     Indication: NAUSEA
     Dosage: 1 DOSAGE FORM, PRN (IF NAUSEA AND VOMITING)
     Route: 048
  3. PENTACARINAT [Concomitant]
     Active Substance: PENTAMIDINE ISETHIONATE
     Dosage: 300 MILLIGRAM (POWDER FOR INHALATION AND PARENTERAL USE), QMT
     Route: 055
     Dates: start: 20191115, end: 20201014
  4. HIZENTRA [Suspect]
     Active Substance: HUMAN IMMUNOGLOBULIN G
     Indication: HYPOGAMMAGLOBULINAEMIA
     Dosage: UNK UNK, QW
     Route: 058
     Dates: start: 20200218, end: 202009
  5. HIZENTRA [Suspect]
     Active Substance: HUMAN IMMUNOGLOBULIN G
     Dosage: 8 GRAM, QW
     Route: 058
     Dates: start: 2020, end: 2020
  6. HIZENTRA [Suspect]
     Active Substance: HUMAN IMMUNOGLOBULIN G
     Dosage: UNK
     Route: 058
     Dates: start: 2020, end: 2020
  7. WELLVONE [Concomitant]
     Active Substance: ATOVAQUONE
     Dosage: UNK UNK, BID
     Route: 048
     Dates: start: 20201014
  8. VALACICLOVIR [Concomitant]
     Active Substance: VALACYCLOVIR HYDROCHLORIDE
     Route: 048
     Dates: start: 20190803
  9. DOXYCYCLINE. [Concomitant]
     Active Substance: DOXYCYCLINE
     Route: 048
     Dates: start: 20190905
  10. HIZENTRA [Suspect]
     Active Substance: HUMAN IMMUNOGLOBULIN G
     Dosage: UNK
     Route: 058
     Dates: start: 2020, end: 2020
  11. HIZENTRA [Suspect]
     Active Substance: HUMAN IMMUNOGLOBULIN G
     Dosage: 10 GRAM, QW
     Route: 058
     Dates: start: 2020, end: 2020
  12. HIZENTRA [Suspect]
     Active Substance: HUMAN IMMUNOGLOBULIN G
     Dosage: 6 GRAM, QW
     Route: 058
     Dates: start: 2020, end: 2020
  13. IMBRUVICA [Concomitant]
     Active Substance: IBRUTINIB
     Route: 048
     Dates: start: 20200401
  14. PARACETAMOL [Concomitant]
     Active Substance: ACETAMINOPHEN
     Indication: PAIN
     Dosage: 1 GRAM, PRN (IF PAIN)
  15. HIZENTRA [Suspect]
     Active Substance: HUMAN IMMUNOGLOBULIN G
     Dosage: UNK
     Route: 058
     Dates: start: 2020, end: 2020
  16. MOTILIUM [Concomitant]
     Active Substance: DOMPERIDONE
     Indication: VOMITING

REACTIONS (3)
  - Myalgia [Recovered/Resolved]
  - Chills [Recovered/Resolved]
  - Vertigo [Recovered/Resolved]

NARRATIVE: CASE EVENT DATE: 20200218
